FAERS Safety Report 11094933 (Version 1)
Quarter: 2015Q2

REPORT INFORMATION
  Report Type: Spontaneous
  Country: US (occurrence: US)
  Receive Date: 20150506
  Receipt Date: 20150506
  Transmission Date: 20150821
  Serious: Yes (Other)
  Sender: FDA-Public Use
  Company Number: US-ASTRAZENECA-2015SE41476

PATIENT
  Sex: Female
  Weight: 46.3 kg

DRUGS (1)
  1. BUDESONIDE. [Suspect]
     Active Substance: BUDESONIDE
     Indication: CROHN^S DISEASE
     Route: 048
     Dates: start: 20150421

REACTIONS (8)
  - Flatulence [Unknown]
  - Multiple allergies [Unknown]
  - Therapy cessation [Unknown]
  - Eructation [Unknown]
  - Abdominal discomfort [Unknown]
  - Malaise [Unknown]
  - Crohn^s disease [Unknown]
  - Gastritis [Unknown]
